FAERS Safety Report 7381133-7 (Version None)
Quarter: 2011Q1

REPORT INFORMATION
  Report Type: 
  Country: None (occurrence: None)
  Receive Date: 20110329
  Receipt Date: 20110315
  Transmission Date: 20110831
  Serious: Yes (Other)
  Sender: FDA-Public Use
  Company Number: US-JNJFOC-20110306986

PATIENT
  Age: 36 Year
  Sex: Male
  Weight: 97.52 kg

DRUGS (2)
  1. CORTISONE [Concomitant]
     Indication: INTERVERTEBRAL DISC PROTRUSION
     Route: 050
  2. REMICADE [Suspect]
     Indication: PSORIASIS
     Route: 042

REACTIONS (1)
  - SPERM CONCENTRATION DECREASED [None]
